FAERS Safety Report 6251839-1 (Version None)
Quarter: 2009Q2

REPORT INFORMATION
  Report Type: 
  Country: None (occurrence: None)
  Receive Date: 20090630
  Receipt Date: 20090629
  Transmission Date: 20091009
  Serious: Yes (Hospitalization)
  Sender: FDA-Public Use
  Company Number: DE-WYE-G03954909

PATIENT
  Sex: Male
  Weight: 90 kg

DRUGS (3)
  1. VENLAFAXINE HCL [Suspect]
     Dosage: UNKNOWN OVERDOSE AMOUNT WITHIN 10 HOURS
     Route: 048
     Dates: start: 20090629, end: 20090629
  2. MIRTAZAPINE [Suspect]
     Dosage: UNKNOWN OVERDOSE AMOUNT WITHIN 10 HOURS
     Route: 048
     Dates: start: 20090629, end: 20090629
  3. DOXEPIN HCL [Suspect]
     Dosage: UNKNOWN OVERDOSE AMOUNT WITHIN 10 HOURS
     Route: 048
     Dates: start: 20090629, end: 20090629

REACTIONS (5)
  - CONVULSION [None]
  - DEPRESSED LEVEL OF CONSCIOUSNESS [None]
  - DYSARTHRIA [None]
  - MYDRIASIS [None]
  - OVERDOSE [None]
